FAERS Safety Report 13708160 (Version 1)
Quarter: 2017Q2

REPORT INFORMATION
  Report Type: Report from Study
  Country: None (occurrence: US)
  Receive Date: 20170630
  Receipt Date: 20170630
  Transmission Date: 20170830
  Serious: No
  Sender: FDA-Public Use
  Company Number: US-IPSEN BIOPHARMACEUTICALS, INC.-2015-7302

PATIENT
  Age: 57 Year
  Sex: Female

DRUGS (1)
  1. SOMATULINE DEPOT [Suspect]
     Active Substance: LANREOTIDE ACETATE
     Indication: ACROMEGALY
     Dosage: NOT REPORTED
     Route: 065

REACTIONS (24)
  - Adverse event [Unknown]
  - Nail disorder [Unknown]
  - Pain [Unknown]
  - Gastrointestinal disorder [Unknown]
  - Injection site pain [Unknown]
  - Hypokinesia [Unknown]
  - Blood thyroid stimulating hormone decreased [Unknown]
  - Discomfort [Unknown]
  - Injection site discomfort [Unknown]
  - Arthralgia [Unknown]
  - Headache [Unknown]
  - Dizziness [Unknown]
  - Fatigue [Unknown]
  - Constipation [Unknown]
  - Device issue [Unknown]
  - Malaise [Unknown]
  - Weight abnormal [Unknown]
  - Feeling abnormal [Unknown]
  - Insulin-like growth factor increased [Unknown]
  - Quality of life decreased [Unknown]
  - Vertigo [Unknown]
  - Drug ineffective [Unknown]
  - Thyroid disorder [Unknown]
  - Poor quality sleep [Unknown]
